FAERS Safety Report 24566467 (Version 2)
Quarter: 2024Q4

REPORT INFORMATION
  Report Type: Other
  Country: GB (occurrence: GB)
  Receive Date: 20241030
  Receipt Date: 20241108
  Transmission Date: 20250114
  Serious: Yes (Other)
  Sender: GLENMARK
  Company Number: None

PATIENT

DRUGS (3)
  1. ROPINIROLE HYDROCHLORIDE [Suspect]
     Active Substance: ROPINIROLE HYDROCHLORIDE
     Indication: Restless legs syndrome
     Dosage: 2 MILLIGRAM, OD, 2MG ONCE A DAY AT NIGHT
     Route: 065
     Dates: start: 20111104, end: 20230202
  2. ROPINIROLE HYDROCHLORIDE [Suspect]
     Active Substance: ROPINIROLE HYDROCHLORIDE
     Dosage: UNK
     Route: 065
  3. BUPRENORPHINE [Concomitant]
     Active Substance: BUPRENORPHINE
     Indication: Restless legs syndrome
     Dosage: 0.4 MILLIGRAM, QD
     Route: 065

REACTIONS (1)
  - Restless leg augmentation syndrome [Recovered/Resolved with Sequelae]

NARRATIVE: CASE EVENT DATE: 20160607
